FAERS Safety Report 8179192-7 (Version None)
Quarter: 2012Q1

REPORT INFORMATION
  Report Type: 
  Country: None (occurrence: None)
  Receive Date: 20120227
  Receipt Date: 20120213
  Transmission Date: 20120608
  Serious: Yes (Congenital Anomaly, Other)
  Sender: FDA-Public Use
  Company Number: E2B_00000160

PATIENT
  Sex: Female
  Weight: 1.71 kg

DRUGS (4)
  1. CLOBAZAM (FRISIUM) [Suspect]
     Indication: EPILEPSY
     Dosage: 7.5 MG (2.5 MG, 3 IN 1 D), TRANSPLACENTAL
     Route: 064
     Dates: start: 20101217, end: 20110211
  2. THYROXINE (THYROXIN) [Concomitant]
  3. FOLIC ACID [Concomitant]
  4. LAMOTRIGINE [Suspect]
     Indication: EPILEPSY
     Dosage: 375 [MG/D ]/ TIL 20100928: 150 MG/D, THEN SLOWLY INCREASED TO 375 MG/D, TRANSPLACENTAL
     Route: 064
     Dates: start: 20100708, end: 20110211

REACTIONS (14)
  - MATERNAL DRUGS AFFECTING FOETUS [None]
  - ATRIAL SEPTAL DEFECT [None]
  - CARDIAC ANEURYSM [None]
  - MYOCLONUS [None]
  - CEREBRAL HAEMORRHAGE [None]
  - ANAEMIA NEONATAL [None]
  - FEEDING DISORDER NEONATAL [None]
  - HYPERLIPIDAEMIA [None]
  - CONGENITAL CHOROID PLEXUS CYST [None]
  - HYPOGLYCAEMIA NEONATAL [None]
  - VENTRICULAR SEPTAL DEFECT [None]
  - FOETAL HEART RATE DECELERATION [None]
  - NEONATAL RESPIRATORY DISTRESS SYNDROME [None]
  - CONVULSION NEONATAL [None]
